FAERS Safety Report 5709973-8 (Version None)
Quarter: 2008Q2

REPORT INFORMATION
  Report Type: 
  Country: None (occurrence: None)
  Receive Date: 20080418
  Receipt Date: 20070622
  Transmission Date: 20081010
  Serious: No
  Sender: FDA-Public Use
  Company Number: US-ASTRAZENECA-2007UW15008

PATIENT
  Age: 71 Year
  Sex: Female

DRUGS (5)
  1. TOPROL-XL [Suspect]
  2. ACTOS [Concomitant]
  3. ENALAPRIL MALEATE [Concomitant]
  4. FUROSEMIDE [Concomitant]
  5. LYRICA [Concomitant]

REACTIONS (6)
  - ABNORMAL DREAMS [None]
  - DIARRHOEA [None]
  - DIZZINESS [None]
  - INSOMNIA [None]
  - SOMNOLENCE [None]
  - VISUAL DISTURBANCE [None]
